FAERS Safety Report 19739794 (Version 1)
Quarter: 2021Q3

REPORT INFORMATION
  Report Type: Report from Study
  Country: DE (occurrence: DE)
  Receive Date: 20210824
  Receipt Date: 20210824
  Transmission Date: 20211014
  Serious: Yes (Other)
  Sender: FDA-Public Use
  Company Number: DE-MYLANLABS-2021M1053718

PATIENT
  Sex: Female

DRUGS (2)
  1. ANASTROZOLE. [Suspect]
     Active Substance: ANASTROZOLE
     Indication: BREAST CANCER
     Dosage: 1 MILLIGRAM, QD (1 MG, QD)
     Route: 048
     Dates: start: 20210113
  2. KISQALI [Suspect]
     Active Substance: RIBOCICLIB
     Indication: BREAST CANCER
     Dosage: 600 MILLIGRAM, Q3W (600 MG, Q3W (ADMINISTRATION SCHEME 21 DAYS INTAKE, 7 DAYS PAUSE))
     Route: 065
     Dates: start: 20210113

REACTIONS (4)
  - Dry skin [Not Recovered/Not Resolved]
  - Hot flush [Not Recovered/Not Resolved]
  - Dysgeusia [Not Recovered/Not Resolved]
  - Neuropathy peripheral [Not Recovered/Not Resolved]

NARRATIVE: CASE EVENT DATE: 20210113
